FAERS Safety Report 4307531-3 (Version None)
Quarter: 2004Q1

REPORT INFORMATION
  Report Type: 
  Country: None (occurrence: None)
  Receive Date: 20040226
  Receipt Date: 20040218
  Transmission Date: 20041129
  Serious: Yes (Hospitalization, Other)
  Sender: FDA-Public Use
  Company Number: 2004-02-1424

PATIENT
  Age: 59 Year
  Sex: Male
  Weight: 70 kg

DRUGS (9)
  1. REBETOL [Suspect]
     Indication: HEPATITIS C
     Dosage: 800 MG QD* ORAL
     Route: 048
     Dates: start: 20020919, end: 20030331
  2. REBETOL [Suspect]
     Indication: HEPATITIS C
     Dosage: 800 MG QD* ORAL
     Route: 048
     Dates: start: 20020919, end: 20030924
  3. REBETOL [Suspect]
     Indication: HEPATITIS C
     Dosage: 800 MG QD* ORAL
     Route: 048
     Dates: start: 20030824, end: 20030924
  4. INTRON A [Suspect]
     Indication: HEPATITIS C
     Dosage: 6-3MU*5-3X/WK INTRAMUSCULAR
     Route: 030
     Dates: start: 20020919, end: 20020930
  5. INTRON A [Suspect]
     Indication: HEPATITIS C
     Dosage: 6-3MU*5-3X/WK INTRAMUSCULAR
     Route: 030
     Dates: start: 20021002, end: 20030331
  6. INTRON A [Suspect]
     Indication: HEPATITIS C
     Dosage: 6-3MU*5-3X/WK INTRAMUSCULAR
     Route: 030
     Dates: start: 20020919, end: 20030929
  7. INTRON A [Suspect]
     Indication: HEPATITIS C
     Dosage: 6-3MU*5-3X/WK INTRAMUSCULAR
     Route: 030
     Dates: start: 20030402, end: 20030929
  8. UROSOSAN [Concomitant]
  9. PROHEPARUM [Concomitant]

REACTIONS (4)
  - GENERALISED OEDEMA [None]
  - HEPATIC ENZYME INCREASED [None]
  - RHABDOMYOLYSIS [None]
  - WEIGHT INCREASED [None]
